FAERS Safety Report 8378564-5 (Version None)
Quarter: 2012Q2

REPORT INFORMATION
  Report Type: 
  Country: None (occurrence: None)
  Receive Date: 20120522
  Receipt Date: 20110808
  Transmission Date: 20120825
  Serious: No
  Sender: FDA-Public Use
  Company Number: US-ASTRAZENECA-2011SE47232

PATIENT
  Age: 80 Year
  Sex: Female
  Weight: 64.4 kg

DRUGS (7)
  1. PRILOSEC [Suspect]
     Indication: GASTROOESOPHAGEAL REFLUX DISEASE
     Route: 048
     Dates: start: 20110101, end: 20110801
  2. SYNTHROID [Concomitant]
  3. PROTONIX [Concomitant]
  4. CARDURA [Concomitant]
  5. ATENOLOL [Concomitant]
  6. PRILOSEC [Suspect]
     Route: 048
  7. COUMADIN [Concomitant]

REACTIONS (5)
  - PAIN IN EXTREMITY [None]
  - CONDITION AGGRAVATED [None]
  - BACK PAIN [None]
  - CHEST PAIN [None]
  - INAPPROPRIATE SCHEDULE OF DRUG ADMINISTRATION [None]
